FAERS Safety Report 13284436 (Version 1)
Quarter: 2017Q1

REPORT INFORMATION
  Report Type: Report from Study
  Country: US (occurrence: US)
  Receive Date: 20170301
  Receipt Date: 20170301
  Transmission Date: 20170428
  Serious: Yes (Hospitalization)
  Sender: FDA-Public Use
  Company Number: US-JNJFOC-20170227599

PATIENT
  Sex: Female

DRUGS (12)
  1. LEVOTHYROXIN [Concomitant]
     Active Substance: LEVOTHYROXINE
  2. MEMANTINE. [Concomitant]
     Active Substance: MEMANTINE
  3. IMBRUVICA [Suspect]
     Active Substance: IBRUTINIB
     Indication: CHRONIC LYMPHOCYTIC LEUKAEMIA
     Route: 048
  4. IMBRUVICA [Suspect]
     Active Substance: IBRUTINIB
     Indication: CHRONIC LYMPHOCYTIC LEUKAEMIA
     Route: 048
     Dates: start: 20160706
  5. DONEPEZIL. [Concomitant]
     Active Substance: DONEPEZIL
  6. FLUCONAZOLE. [Concomitant]
     Active Substance: FLUCONAZOLE
  7. AMLODIPINE [Concomitant]
     Active Substance: AMLODIPINE BESYLATE
  8. ASPIRIN. [Concomitant]
     Active Substance: ASPIRIN
  9. IRBESARTAN. [Concomitant]
     Active Substance: IRBESARTAN
  10. SIMVASTATIN. [Concomitant]
     Active Substance: SIMVASTATIN
  11. GABAPENTIN. [Concomitant]
     Active Substance: GABAPENTIN
  12. IRON [Concomitant]
     Active Substance: IRON

REACTIONS (1)
  - Immune system disorder [Unknown]
